FAERS Safety Report 7959147-5 (Version None)
Quarter: 2011Q4

REPORT INFORMATION
  Report Type: 
  Country: None (occurrence: None)
  Receive Date: 20111206
  Receipt Date: 20111123
  Transmission Date: 20120403
  Serious: Yes (Other)
  Sender: FDA-Public Use
  Company Number: DE-ELI_LILLY_AND_COMPANY-DE201109003467

PATIENT
  Age: 13 Year
  Sex: Male
  Weight: 51.3 kg

DRUGS (2)
  1. STRATTERA [Suspect]
     Indication: ATTENTION DEFICIT/HYPERACTIVITY DISORDER
     Dosage: 40 MG, UNK
     Route: 048
     Dates: start: 20100301, end: 20110901
  2. STRATTERA [Suspect]
     Dosage: UNK
     Dates: start: 20110901, end: 20110901

REACTIONS (2)
  - GILBERT'S SYNDROME [None]
  - HYPERBILIRUBINAEMIA [None]
